FAERS Safety Report 8329927-5 (Version None)
Quarter: 2012Q2

REPORT INFORMATION
  Report Type: 
  Country: None (occurrence: None)
  Receive Date: 20120502
  Receipt Date: 20120425
  Transmission Date: 20120825
  Serious: Yes (Hospitalization)
  Sender: FDA-Public Use
  Company Number: US-BAYER-2011-075142

PATIENT
  Age: 27 Year
  Sex: Female

DRUGS (10)
  1. TYLENOL (CAPLET) [Concomitant]
     Indication: PAIN
  2. OXYCODONE HCL AND ACETAMINOPHEN [Concomitant]
     Dosage: UNK
     Route: 048
     Dates: start: 20080917, end: 20090206
  3. ABILIFY [Concomitant]
     Dosage: 2 MG, UNK
     Route: 048
     Dates: start: 20080903, end: 20081128
  4. YAZ [Suspect]
  5. YASMIN [Suspect]
  6. TOPAMAX [Concomitant]
     Dosage: 200 MG, DAILY
     Route: 048
  7. IBUPROFEN [Concomitant]
     Dosage: 800 MG, UNK
     Route: 048
     Dates: start: 20081230
  8. PERCOCET [Concomitant]
  9. LAMICTAL [Concomitant]
     Dosage: 200 MG, DAILY
  10. PROAIR HFA [Concomitant]
     Dosage: 90 MCG, UNK

REACTIONS (1)
  - PULMONARY EMBOLISM [None]
